FAERS Safety Report 21847876 (Version 2)
Quarter: 2023Q1

REPORT INFORMATION
  Report Type: Report from Study
  Country: BR (occurrence: BR)
  Receive Date: 20230111
  Receipt Date: 20230210
  Transmission Date: 20230418
  Serious: Yes (Other)
  Sender: FDA-Public Use
  Company Number: BR-002147023-NVSC2022BR281095

PATIENT
  Sex: Female

DRUGS (2)
  1. RIBOCICLIB [Suspect]
     Active Substance: RIBOCICLIB
     Indication: Product used for unknown indication
     Dosage: UNK
     Route: 065
  2. RIBOCICLIB [Suspect]
     Active Substance: RIBOCICLIB
     Dosage: UNK
     Route: 065

REACTIONS (10)
  - Metastasis [Unknown]
  - Disease progression [Unknown]
  - Decreased immune responsiveness [Unknown]
  - Pharyngitis [Recovered/Resolved]
  - Eating disorder [Recovered/Resolved]
  - Pain [Unknown]
  - Decreased appetite [Unknown]
  - Sense of oppression [Unknown]
  - Speech disorder [Unknown]
  - Moaning [Unknown]
